FAERS Safety Report 11336601 (Version 2)
Quarter: 2015Q3

REPORT INFORMATION
  Report Type: Spontaneous
  Country: IT (occurrence: IT)
  Receive Date: 20150804
  Receipt Date: 20150904
  Transmission Date: 20151125
  Serious: Yes (Other)
  Sender: FDA-Public Use
  Company Number: IT-TEVA-582777ISR

PATIENT
  Age: 74 Year
  Sex: Male

DRUGS (2)
  1. VINBLASTINE [Suspect]
     Active Substance: VINBLASTINE
     Indication: KAPOSI^S SARCOMA CLASSICAL TYPE
     Dosage: 0.1 MG/M2 ONCE A WEEK (ALTERNATIVELY)
     Route: 042
  2. VINCRISTINE [Suspect]
     Active Substance: VINCRISTINE
     Indication: KAPOSI^S SARCOMA CLASSICAL TYPE
     Dosage: 1 MG/M2 ONCE A WEEK (ALTERNATIVELY)
     Route: 042

REACTIONS (3)
  - Chest pain [Unknown]
  - Nausea [Unknown]
  - Neutropenia [Unknown]
